FAERS Safety Report 7286351-4 (Version None)
Quarter: 2011Q1

REPORT INFORMATION
  Report Type: 
  Country: None (occurrence: None)
  Receive Date: 20110210
  Receipt Date: 20110204
  Transmission Date: 20110831
  Serious: Yes (Death)
  Sender: FDA-Public Use
  Company Number: JP-CEPHALON-2011000585

PATIENT
  Sex: Male

DRUGS (13)
  1. FILGRASTIM [Concomitant]
     Dates: start: 20101126, end: 20110201
  2. MAGNESIUM OXIDE [Concomitant]
     Dates: start: 20101001, end: 20110131
  3. FLUCONAZOLE [Concomitant]
     Dates: start: 20100826, end: 20110131
  4. CIPROFLOXACIN HEXAL-PHARMA [Concomitant]
     Dates: start: 20110120, end: 20110131
  5. BENDAMUSTINE HCL [Suspect]
     Indication: B-CELL SMALL LYMPHOCYTIC LYMPHOMA
     Route: 042
     Dates: start: 20110114, end: 20110115
  6. CIPROFLOXACIN HYDROCHLORIDE [Concomitant]
     Dates: start: 20110107, end: 20110119
  7. SULFAMETHOXAZOLE AND TRIMETHOPRIM [Concomitant]
     Dates: start: 20101125, end: 20110131
  8. ITRACONAZOLE [Concomitant]
     Dates: start: 20110120, end: 20110131
  9. GRANISETRON HYDROCHLORIDE [Concomitant]
     Dates: start: 20110114, end: 20110115
  10. DORIPENEM [Concomitant]
     Dates: start: 20110121, end: 20110201
  11. AMLODIPINE BESYLATE [Concomitant]
     Dates: start: 20110117, end: 20110131
  12. LOXOPROFEN SODIUM [Concomitant]
     Dates: start: 20110109, end: 20110131
  13. ACICLOVIR [Concomitant]
     Dates: start: 20110114, end: 20110120

REACTIONS (5)
  - C-REACTIVE PROTEIN INCREASED [None]
  - B-CELL SMALL LYMPHOCYTIC LYMPHOMA [None]
  - NEUTROPENIA [None]
  - WHITE BLOOD CELL COUNT DECREASED [None]
  - THROMBOCYTOPENIA [None]
